FAERS Safety Report 4593701-6 (Version None)
Quarter: 2005Q1

REPORT INFORMATION
  Report Type: 
  Country: None (occurrence: None)
  Receive Date: 20050224
  Receipt Date: 20041111
  Transmission Date: 20050727
  Serious: No
  Sender: FDA-Public Use
  Company Number: US-BRISTOL-MYERS SQUIBB COMPANY-12765012

PATIENT
  Age: 65 Year
  Sex: Female
  Weight: 111 kg

DRUGS (5)
  1. EXCEDRIN (MIGRAINE) [Suspect]
     Indication: HEADACHE
     Route: 048
  2. METHOTREXATE [Concomitant]
  3. HYDROCHLOROTHIAZIDE [Concomitant]
  4. POTASSIUM CHLORIDE [Concomitant]
  5. TOPROL-XL [Concomitant]

REACTIONS (1)
  - STOMACH DISCOMFORT [None]
